FAERS Safety Report 14750567 (Version 1)
Quarter: 2018Q2

REPORT INFORMATION
  Report Type: Spontaneous
  Country: FR (occurrence: FR)
  Receive Date: 20180412
  Receipt Date: 20180412
  Transmission Date: 20180711
  Serious: Yes (Other)
  Sender: FDA-Public Use
  Company Number: FR-MERCK KGAA-2045652

PATIENT
  Age: 42 Year
  Sex: Female
  Weight: 90 kg

DRUGS (1)
  1. NOVOTHYROX [Suspect]
     Active Substance: LEVOTHYROXINE SODIUM
     Indication: PAPILLARY THYROID CANCER
     Route: 048
     Dates: end: 201709

REACTIONS (14)
  - Muscle spasms [Recovering/Resolving]
  - Vertigo [Recovering/Resolving]
  - Headache [Recovering/Resolving]
  - Insomnia [Recovering/Resolving]
  - Vomiting [Recovering/Resolving]
  - Visual impairment [Recovering/Resolving]
  - Tachycardia [Recovering/Resolving]
  - Diarrhoea [Recovering/Resolving]
  - Fatigue [Recovering/Resolving]
  - Hypertension [Recovering/Resolving]
  - Nausea [Recovering/Resolving]
  - Diffuse alopecia [Recovering/Resolving]
  - Arthralgia [Recovering/Resolving]
  - Dry eye [Recovering/Resolving]

NARRATIVE: CASE EVENT DATE: 201708
